FAERS Safety Report 25230792 (Version 1)
Quarter: 2025Q2

REPORT INFORMATION
  Report Type: Spontaneous
  Country: US (occurrence: US)
  Receive Date: 20250423
  Receipt Date: 20250423
  Transmission Date: 20250716
  Serious: No
  Sender: VITRUVIAS THERAPEUTICS
  Company Number: US-Vitruvias Therapeutics-2175420

PATIENT
  Sex: Female

DRUGS (1)
  1. CYANOCOBALAMIN [Suspect]
     Active Substance: CYANOCOBALAMIN

REACTIONS (1)
  - Injection site pain [Recovered/Resolved]
